FAERS Safety Report 5721849-9 (Version None)
Quarter: 2008Q2

REPORT INFORMATION
  Report Type: 
  Country: None (occurrence: None)
  Receive Date: 20080429
  Receipt Date: 20080421
  Transmission Date: 20081010
  Serious: Yes (Hospitalization)
  Sender: FDA-Public Use
  Company Number: BE-ABBOTT-08P-013-0448241-00

PATIENT
  Sex: Male

DRUGS (6)
  1. HUMIRA [Suspect]
     Indication: ANKYLOSING SPONDYLITIS
     Dates: start: 20071019, end: 20080111
  2. HUMIRA [Suspect]
  3. NAPROXEN [Concomitant]
     Indication: ANKYLOSING SPONDYLITIS
     Route: 048
  4. METHOTREXATE [Concomitant]
     Indication: ANKYLOSING SPONDYLITIS
     Route: 030
  5. FOLIC ACID [Concomitant]
     Indication: ANKYLOSING SPONDYLITIS
     Route: 048
  6. OMEPRAZOLE [Concomitant]
     Indication: DRUG USE FOR UNKNOWN INDICATION
     Route: 048

REACTIONS (1)
  - TONSILLECTOMY [None]
